FAERS Safety Report 6412524-6 (Version None)
Quarter: 2009Q4

REPORT INFORMATION
  Report Type: 
  Country: None (occurrence: None)
  Receive Date: 20091023
  Receipt Date: 20090626
  Transmission Date: 20100525
  Serious: No
  Sender: FDA-Public Use
  Company Number: US-BRISTOL-MYERS SQUIBB COMPANY-14681688

PATIENT
  Age: 28 Year
  Sex: Female
  Weight: 58 kg

DRUGS (1)
  1. KENALOG-40 [Suspect]
     Indication: SEASONAL ALLERGY
     Dosage: 1 DF=40MG/ML, 10ML VIAL
     Dates: start: 20090422

REACTIONS (1)
  - INJECTION SITE REACTION [None]
